FAERS Safety Report 6068692-1 (Version None)
Quarter: 2009Q1

REPORT INFORMATION
  Report Type: 
  Country: None (occurrence: None)
  Receive Date: 20090206
  Receipt Date: 20090126
  Transmission Date: 20090719
  Serious: Yes (Hospitalization)
  Sender: FDA-Public Use
  Company Number: B0555733A

PATIENT
  Age: 44 Year
  Sex: Female

DRUGS (9)
  1. ONDANSETRON HYDROCHLORIDE [Suspect]
     Indication: PAIN
     Dosage: 4MG SINGLE DOSE
     Route: 042
  2. MORPHINE [Concomitant]
     Dosage: 4MG SINGLE DOSE
     Route: 065
  3. NITROGLYCERIN [Concomitant]
     Dosage: .4MG SINGLE DOSE
     Route: 060
  4. ASPIRIN [Concomitant]
     Dosage: 325MG SINGLE DOSE
     Route: 048
  5. CLOPIDOGREL [Concomitant]
     Dosage: 75MG SINGLE DOSE
     Route: 065
  6. HEPARIN [Concomitant]
     Route: 065
  7. MAGNESIUM HYDROXIDE TAB [Concomitant]
     Route: 065
  8. GEMFIBROZIL [Concomitant]
     Dosage: 600MG TWICE PER DAY
     Route: 065
  9. OMEPRAZOLE [Concomitant]
     Indication: PAIN
     Dosage: 20MG PER DAY
     Route: 065

REACTIONS (2)
  - LIVER INJURY [None]
  - TRANSAMINASES INCREASED [None]
